FAERS Safety Report 21173552 (Version 2)
Quarter: 2022Q3

REPORT INFORMATION
  Report Type: Spontaneous
  Country: GB (occurrence: GB)
  Receive Date: 20220804
  Receipt Date: 20220817
  Transmission Date: 20221026
  Serious: No
  Sender: FDA-Public Use
  Company Number: GB-009507513-2207GBR000187

PATIENT
  Sex: Female

DRUGS (2)
  1. WATER FOR INJECTION [Suspect]
     Active Substance: WATER
     Indication: Medication dilution
     Dosage: PHARMACEUTICAL FORM: SOLUTION FOR INJECTION/INFUSION, ROUTE OF ADMINISTRATION: PARENTERAL
     Route: 065
  2. ZOSTAVAX [Suspect]
     Active Substance: VARICELLA-ZOSTER VIRUS STRAIN OKA/MERCK LIVE ANTIGEN
     Indication: Prophylaxis
     Dosage: PHARMACEUTICAL FORM: INJECTION, ROUTE OF ADMINISTRATION: PARENTERAL
     Route: 065

REACTIONS (4)
  - Injury associated with device [Unknown]
  - Wrong technique in product usage process [Unknown]
  - Device connection issue [Unknown]
  - Occupational exposure to product [Unknown]
